FAERS Safety Report 7363368-2 (Version None)
Quarter: 2011Q1

REPORT INFORMATION
  Report Type: 
  Country: None (occurrence: None)
  Receive Date: 20110321
  Receipt Date: 20110314
  Transmission Date: 20110831
  Serious: Yes (Hospitalization)
  Sender: FDA-Public Use
  Company Number: FR-TEVA-266925ISR

PATIENT
  Sex: Male

DRUGS (3)
  1. AZILECT [Suspect]
     Indication: PARKINSON'S DISEASE
     Route: 048
     Dates: start: 20101001, end: 20110101
  2. PIRIBEDIL [Interacting]
     Indication: PARKINSON'S DISEASE
     Route: 048
     Dates: start: 20090101, end: 20110101
  3. MADOPAR [Interacting]
     Indication: PARKINSON'S DISEASE
     Route: 048
     Dates: start: 20010101

REACTIONS (2)
  - ABNORMAL BEHAVIOUR [None]
  - DRUG INTERACTION [None]
